FAERS Safety Report 4556168-X (Version None)
Quarter: 2005Q1

REPORT INFORMATION
  Report Type: 
  Country: None (occurrence: None)
  Receive Date: 20050103
  Receipt Date: 20041027
  Transmission Date: 20050727
  Serious: Yes (Hospitalization)
  Sender: FDA-Public Use
  Company Number: 2004UW19699

PATIENT
  Age: 46 Year
  Sex: Male
  Weight: 89.3586 kg

DRUGS (11)
  1. CRESTOR [Suspect]
     Indication: BLOOD CHOLESTEROL INCREASED
     Dosage: 20 MG QD PO
     Route: 048
     Dates: start: 20040505, end: 20040901
  2. CRESTOR [Suspect]
     Indication: CORONARY ARTERY DISEASE
     Dosage: 20 MG QD PO
     Route: 048
     Dates: start: 20040505, end: 20040901
  3. CRESTOR [Suspect]
     Indication: CORONARY ARTERY SURGERY
     Dosage: 20 MG QD PO
     Route: 048
     Dates: start: 20040505, end: 20040901
  4. CRESTOR [Suspect]
     Indication: BLOOD CHOLESTEROL INCREASED
     Dosage: 20 MG QD PO
     Route: 048
     Dates: start: 20040901
  5. CRESTOR [Suspect]
     Indication: CORONARY ARTERY DISEASE
     Dosage: 20 MG QD PO
     Route: 048
     Dates: start: 20040901
  6. ZETIA [Concomitant]
  7. LEXAPRO [Concomitant]
  8. NORVASC [Concomitant]
  9. TOPROL-XL [Concomitant]
  10. ALTACE [Concomitant]
  11. ASPIRIN [Concomitant]

REACTIONS (1)
  - PANCREATITIS [None]
